FAERS Safety Report 14540347 (Version 1)
Quarter: 2018Q1

REPORT INFORMATION
  Report Type: Spontaneous
  Country: US (occurrence: US)
  Receive Date: 20180216
  Receipt Date: 20180216
  Transmission Date: 20180509
  Serious: No
  Sender: FDA-Public Use
  Company Number: US-LUNDBECK-DKLU2034160

PATIENT
  Age: 83 Year
  Sex: Male

DRUGS (9)
  1. ZOLOFT [Concomitant]
     Active Substance: SERTRALINE HYDROCHLORIDE
  2. METFORMIN [Concomitant]
     Active Substance: METFORMIN HYDROCHLORIDE
  3. NORTHERA [Suspect]
     Active Substance: DROXIDOPA
     Indication: PRODUCT USED FOR UNKNOWN INDICATION
  4. ASPIRIN. [Concomitant]
     Active Substance: ASPIRIN
  5. RYDEX [Concomitant]
     Active Substance: BROMPHENIRAMINE MALEATE\CODEINE PHOSPHATE\PSEUDOEPHEDRINE HYDROCHLORIDE
  6. DONEPEZIL. [Concomitant]
     Active Substance: DONEPEZIL
  7. FLOMAX [Concomitant]
     Active Substance: TAMSULOSIN HYDROCHLORIDE
  8. CHILDRENS VITAMIN D [Concomitant]
  9. MEMANTINE. [Concomitant]
     Active Substance: MEMANTINE

REACTIONS (2)
  - Fall [Unknown]
  - Balance disorder [Unknown]

NARRATIVE: CASE EVENT DATE: 20170710
